FAERS Safety Report 4646075-6 (Version None)
Quarter: 2005Q2

REPORT INFORMATION
  Report Type: 
  Country: None (occurrence: None)
  Receive Date: 20050427
  Receipt Date: 20040406
  Transmission Date: 20051028
  Serious: No
  Sender: FDA-Public Use
  Company Number: US-GLAXOSMITHKLINE-A0506009A

PATIENT
  Age: 27 Year
  Sex: Female

DRUGS (4)
  1. ZOFRAN [Suspect]
     Indication: ILL-DEFINED DISORDER
     Dosage: 32MG SINGLE DOSE
     Route: 042
     Dates: start: 20040301
  2. ZOFRAN [Suspect]
     Dosage: 8MG TWICE PER DAY
     Route: 048
     Dates: start: 20040301
  3. AMBIEN [Concomitant]
  4. PROTONIX [Concomitant]

REACTIONS (1)
  - DRUG INEFFECTIVE [None]
